FAERS Safety Report 23549601 (Version 2)
Quarter: 2024Q2

REPORT INFORMATION
  Report Type: Spontaneous
  Country: SK (occurrence: SK)
  Receive Date: 20240221
  Receipt Date: 20240425
  Transmission Date: 20240716
  Serious: Yes (Death, Other)
  Sender: FDA-Public Use
  Company Number: SK-AMGEN-SVKSP2024034579

PATIENT
  Age: 73 Year
  Sex: Female
  Weight: 75 kg

DRUGS (7)
  1. APREMILAST [Suspect]
     Active Substance: APREMILAST
     Indication: Guttate psoriasis
     Dosage: UNK
     Route: 065
     Dates: start: 202305
  2. METHYLPREDNISOLONE [Concomitant]
     Active Substance: METHYLPREDNISOLONE
     Indication: Giant cell arteritis
     Dosage: 4 MILLIGRAM, QD, 5 MILLIGRAM SINCE FEB/2016
  3. Dalacin [Concomitant]
  4. ACITRETIN [Concomitant]
     Active Substance: ACITRETIN
     Dosage: 25 MILLIGRAM, QD (WITHIN A MONTH, WITHOUT EFFECT ON SKIN)
  5. METHOTREXATE SODIUM [Concomitant]
     Active Substance: METHOTREXATE SODIUM
     Dosage: 15 MILLIGRAM AND 10 MILLIGRAM QWK
  6. FOLIC ACID [Concomitant]
     Active Substance: FOLIC ACID
  7. PEMBROLIZUMAB [Concomitant]
     Active Substance: PEMBROLIZUMAB

REACTIONS (2)
  - Death [Fatal]
  - Malignant neoplasm progression [Unknown]

NARRATIVE: CASE EVENT DATE: 20230101
